FAERS Safety Report 6077119-5 (Version None)
Quarter: 2009Q1

REPORT INFORMATION
  Report Type: 
  Country: None (occurrence: None)
  Receive Date: 20090213
  Receipt Date: 20090203
  Transmission Date: 20090719
  Serious: Yes (Other)
  Sender: FDA-Public Use
  Company Number: ES-JNJFOC-20090201611

PATIENT
  Sex: Male

DRUGS (9)
  1. REMICADE [Suspect]
     Indication: ANKYLOSING SPONDYLITIS
     Route: 042
  2. CORTICOID [Concomitant]
  3. METHOTREXATE [Concomitant]
  4. AINES [Concomitant]
  5. ACFOL [Concomitant]
  6. OMEPRAZOLE [Concomitant]
  7. CALCIUM VITAMIN D [Concomitant]
  8. ETANERCEPT [Concomitant]
  9. PREDNISONE [Concomitant]

REACTIONS (2)
  - DRUG INEFFECTIVE [None]
  - LUNG CANCER METASTATIC [None]
